FAERS Safety Report 23785739 (Version 9)
Quarter: 2024Q3

REPORT INFORMATION
  Report Type: Spontaneous
  Country: FR (occurrence: FR)
  Receive Date: 20240425
  Receipt Date: 20240723
  Transmission Date: 20241017
  Serious: Yes (Other)
  Sender: BRISTOL MYERS SQUIBB
  Company Number: FR-BRISTOL-MYERS SQUIBB COMPANY-2024-039478

PATIENT
  Age: 77 Year
  Sex: Male

DRUGS (2)
  1. NIVOLUMAB [Suspect]
     Active Substance: NIVOLUMAB
     Indication: Renal disorder
  2. CABOMETYX [Suspect]
     Active Substance: CABOZANTINIB S-MALATE
     Indication: Renal disorder
     Dosage: UNKNOWN

REACTIONS (25)
  - Myalgia [Recovered/Resolved]
  - Constipation [Recovered/Resolved]
  - Oedema peripheral [Recovered/Resolved]
  - Vision blurred [Recovered/Resolved]
  - Nasopharyngitis [Unknown]
  - Gastrooesophageal reflux disease [Recovered/Resolved]
  - Chills [Recovered/Resolved]
  - Chest pain [Recovering/Resolving]
  - Oesophageal pain [Recovered/Resolved]
  - Cough [Recovered/Resolved]
  - Confusional state [Unknown]
  - Headache [Recovered/Resolved]
  - Pruritus [Recovered/Resolved]
  - Arthralgia [Recovered/Resolved]
  - Musculoskeletal chest pain [Unknown]
  - Fatigue [Recovering/Resolving]
  - Dyspnoea [Recovered/Resolved]
  - Decreased appetite [Recovered/Resolved]
  - Haematoma [Unknown]
  - Dysgeusia [Recovering/Resolving]
  - Weight decreased [Recovered/Resolved]
  - Stomatitis [Recovered/Resolved]
  - Abdominal pain [Recovered/Resolved]
  - Fracture [Unknown]
  - Dizziness [Recovering/Resolving]
